FAERS Safety Report 26030785 (Version 1)
Quarter: 2025Q4

REPORT INFORMATION
  Report Type: Spontaneous
  Country: US (occurrence: US)
  Receive Date: 20251112
  Receipt Date: 20251112
  Transmission Date: 20260118
  Serious: No
  Sender: TORRENT PHARMA INC.
  Company Number: US-TORRENT-00014594

PATIENT
  Sex: Female

DRUGS (2)
  1. DAPSONE [Suspect]
     Active Substance: DAPSONE
     Indication: Acne
     Dosage: ONCE A DAY IN THE MORNING, STOPPED USING IT ON OCTOBER 14 OR 15, 2025.
     Route: 061
     Dates: start: 20251011
  2. YAZ [Concomitant]
     Active Substance: DROSPIRENONE\ETHINYL ESTRADIOL
     Indication: Product used for unknown indication
     Dosage: UNKNOWN
     Route: 048

REACTIONS (1)
  - Skin irritation [Recovered/Resolved]
